FAERS Safety Report 4586328-3 (Version None)
Quarter: 2005Q1

REPORT INFORMATION
  Report Type: 
  Country: None (occurrence: None)
  Receive Date: 20050125
  Receipt Date: 20040929
  Transmission Date: 20050727
  Serious: No
  Sender: FDA-Public Use
  Company Number: USA040979734

PATIENT
  Age: 70 Year
  Sex: Male

DRUGS (2)
  1. FORTEO [Suspect]
     Indication: OSTEOPOROSIS
     Dates: start: 20040801
  2. METHADONE [Concomitant]

REACTIONS (2)
  - CONSTIPATION [None]
  - FAECES DISCOLOURED [None]
